FAERS Safety Report 5759039-6 (Version None)
Quarter: 2008Q2

REPORT INFORMATION
  Report Type: 
  Country: None (occurrence: None)
  Receive Date: 20080604
  Receipt Date: 20080528
  Transmission Date: 20081010
  Serious: Yes (Death, Hospitalization, Other)
  Sender: FDA-Public Use
  Company Number: US-BAXTER-2008BH000660

PATIENT
  Sex: Male

DRUGS (2)
  1. HEPARIN SODIUM INJECTION [Suspect]
     Indication: PERITONEAL DIALYSIS
     Route: 065
  2. DIANEAL [Suspect]
     Indication: PERITONEAL DIALYSIS
     Route: 033

REACTIONS (15)
  - ABDOMINAL PAIN [None]
  - ANAEMIA [None]
  - COLONIC POLYP [None]
  - DIARRHOEA [None]
  - FALL [None]
  - GASTROINTESTINAL HAEMORRHAGE [None]
  - HYPOTENSION [None]
  - INTESTINAL OBSTRUCTION [None]
  - NAUSEA [None]
  - PERITONITIS [None]
  - RETCHING [None]
  - RIB FRACTURE [None]
  - SEPSIS [None]
  - TOOTH FRACTURE [None]
  - VOMITING [None]
